FAERS Safety Report 7999660-8 (Version None)
Quarter: 2011Q4

REPORT INFORMATION
  Report Type: 
  Country: None (occurrence: None)
  Receive Date: 20111221
  Receipt Date: 20111212
  Transmission Date: 20120403
  Serious: Yes (Other)
  Sender: FDA-Public Use
  Company Number: US-ASTRAZENECA-2010SE43163

PATIENT
  Age: 40 Year
  Sex: Male

DRUGS (2)
  1. SYMBICORT [Suspect]
     Dosage: 160/4.5 MCG INHALE 2 PUFFS BID
     Route: 055
  2. NEXIUM [Suspect]
     Route: 048

REACTIONS (2)
  - ASTHMA [None]
  - BRAIN INJURY [None]
